FAERS Safety Report 12180317 (Version 1)
Quarter: 2016Q1

REPORT INFORMATION
  Report Type: Spontaneous
  Country: US (occurrence: US)
  Receive Date: 20160315
  Receipt Date: 20160315
  Transmission Date: 20160526
  Serious: Yes (Hospitalization)
  Sender: FDA-Public Use
  Company Number: US-MALLINCKRODT-T201600788

PATIENT
  Sex: Female
  Weight: 62 kg

DRUGS (4)
  1. HYDROCODONE/ACETAMINOPHEN [Suspect]
     Active Substance: ACETAMINOPHEN\HYDROCODONE
     Indication: PAIN
     Dosage: 10/325 MG; ONE TABLET EVERY 4-6 HOURS AS NEEDED
     Route: 048
     Dates: start: 2015, end: 201602
  2. SYNTHROID [Concomitant]
     Active Substance: LEVOTHYROXINE SODIUM
  3. ZIPSOR [Concomitant]
     Active Substance: DICLOFENAC POTASSIUM
  4. FARESTON [Concomitant]
     Active Substance: TOREMIFENE CITRATE

REACTIONS (7)
  - Product taste abnormal [Unknown]
  - Osteonecrosis [Not Recovered/Not Resolved]
  - Intentional product misuse [Unknown]
  - Joint dislocation [Not Recovered/Not Resolved]
  - Malaise [Recovered/Resolved]
  - Drug ineffective [Unknown]
  - Fatigue [Recovered/Resolved]

NARRATIVE: CASE EVENT DATE: 2015
